FAERS Safety Report 8102189-X (Version None)
Quarter: 2012Q1

REPORT INFORMATION
  Report Type: 
  Country: None (occurrence: None)
  Receive Date: 20120201
  Receipt Date: 20120124
  Transmission Date: 20120608
  Serious: Yes (Hospitalization)
  Sender: FDA-Public Use
  Company Number: US-BIOGENIDEC-2012BI000916

PATIENT
  Age: 58 Year
  Sex: Female

DRUGS (1)
  1. AVONEX [Suspect]
     Indication: MULTIPLE SCLEROSIS
     Route: 030
     Dates: start: 20100501, end: 20120110

REACTIONS (5)
  - LIVER FUNCTION TEST ABNORMAL [None]
  - HEADACHE [None]
  - RED BLOOD CELLS CSF POSITIVE [None]
  - CSF PROTEIN INCREASED [None]
  - ATAXIA [None]
